FAERS Safety Report 12228172 (Version 1)
Quarter: 2016Q1

REPORT INFORMATION
  Report Type: Spontaneous
  Country: US (occurrence: None)
  Receive Date: 20160330
  Receipt Date: 20160330
  Transmission Date: 20160526
  Serious: No
  Sender: FDA-Public Use
  Company Number: None

PATIENT
  Age: 65 Year
  Sex: Male
  Weight: 77.5 kg

DRUGS (1)
  1. SODIUM CHLORIDE. [Suspect]
     Active Substance: SODIUM CHLORIDE
     Indication: T-CELL LYMPHOMA
     Route: 042
     Dates: start: 20160323, end: 20160323

REACTIONS (6)
  - Pruritus generalised [None]
  - Rash [None]
  - Urticaria [None]
  - Erythema [None]
  - Product contamination microbial [None]
  - Product contamination physical [None]

NARRATIVE: CASE EVENT DATE: 20160323
